FAERS Safety Report 22070857 (Version 8)
Quarter: 2023Q4

REPORT INFORMATION
  Report Type: Report from Study
  Country: US (occurrence: US)
  Receive Date: 20230307
  Receipt Date: 20231213
  Transmission Date: 20240110
  Serious: Yes (Other)
  Sender: FDA-Public Use
  Company Number: US-ABBVIE-4327015

PATIENT
  Age: 74 Year
  Sex: Female
  Weight: 74 kg

DRUGS (2)
  1. RINVOQ [Suspect]
     Active Substance: UPADACITINIB
     Indication: Rheumatoid arthritis
     Route: 048
     Dates: start: 20220513
  2. RINVOQ [Suspect]
     Active Substance: UPADACITINIB
     Indication: Rheumatoid arthritis
     Route: 048
     Dates: start: 20230425

REACTIONS (4)
  - Back pain [Recovering/Resolving]
  - Fatigue [Unknown]
  - Post procedural complication [Recovering/Resolving]
  - Insomnia [Unknown]

NARRATIVE: CASE EVENT DATE: 20221201
